FAERS Safety Report 5149276-6 (Version None)
Quarter: 2006Q4

REPORT INFORMATION
  Report Type: 
  Country: None (occurrence: None)
  Receive Date: 20061113
  Receipt Date: 20061011
  Transmission Date: 20070319
  Serious: Yes (Hospitalization)
  Sender: FDA-Public Use
  Company Number: JP-JPN-A200604137

PATIENT
  Age: 71 Year
  Sex: Male
  Weight: 43 kg

DRUGS (10)
  1. VALTREX [Suspect]
     Indication: HERPES ZOSTER
     Dosage: 1000MG PER DAY
     Route: 048
     Dates: start: 20060918, end: 20060921
  2. ISOSORBIDE MONONITRATE [Concomitant]
     Dosage: 40MG PER DAY
     Route: 048
  3. SIGMART [Concomitant]
     Dosage: 15MG PER DAY
     Route: 048
  4. ALLOPURINOL [Concomitant]
     Dosage: 100MG PER DAY
     Route: 048
  5. PREDNISOLONE [Concomitant]
     Dosage: 5MG PER DAY
     Route: 048
  6. RISUMIC [Concomitant]
     Dosage: 10MG PER DAY
     Route: 048
  7. GASTER D [Concomitant]
     Dosage: 20MG PER DAY
     Route: 048
  8. WARFARIN SODIUM [Concomitant]
     Route: 048
  9. PURSENNID [Concomitant]
     Dosage: 36MG PER DAY
     Route: 048
  10. HOMOCLOMIN [Concomitant]
     Dosage: 60MG PER DAY
     Route: 048

REACTIONS (6)
  - DELIRIUM [None]
  - DEPRESSED LEVEL OF CONSCIOUSNESS [None]
  - DIZZINESS [None]
  - NERVOUS SYSTEM DISORDER [None]
  - RESTLESSNESS [None]
  - SOMNOLENCE [None]
